FAERS Safety Report 4790440-3 (Version None)
Quarter: 2005Q4

REPORT INFORMATION
  Report Type: 
  Country: None (occurrence: None)
  Receive Date: 20051005
  Receipt Date: 20050919
  Transmission Date: 20060501
  Serious: Yes (Other)
  Sender: FDA-Public Use
  Company Number: SP00497

PATIENT
  Age: 77 Year
  Sex: Male
  Weight: 71.6683 kg

DRUGS (10)
  1. XIFAXAN [Suspect]
     Indication: HEPATIC CIRRHOSIS
     Dosage: 400MG/ TID, ORAL
     Route: 048
     Dates: start: 20050902
  2. SPIRONOLACTONE [Concomitant]
  3. PROTONIX [Concomitant]
  4. FUROSEMIDE [Concomitant]
  5. PROPRANOLOL [Concomitant]
  6. LEVAQUIN [Concomitant]
  7. AVANDIA [Concomitant]
  8. PAXIL [Concomitant]
  9. AMARYL [Concomitant]
  10. LACTULOSE [Concomitant]

REACTIONS (1)
  - HALLUCINATION [None]
